FAERS Safety Report 5412783-2 (Version None)
Quarter: 2007Q3

REPORT INFORMATION
  Report Type: 
  Country: None (occurrence: None)
  Receive Date: 20070713
  Receipt Date: 20070323
  Transmission Date: 20080115
  Serious: No
  Sender: FDA-Public Use
  Company Number: 2007SP001051

PATIENT
  Age: 49 Year
  Sex: Female
  Weight: 56.6996 kg

DRUGS (5)
  1. LUNESTA [Suspect]
     Indication: INSOMNIA
     Dosage: 3 MG;1X;ORAL
     Route: 048
     Dates: start: 20070130, end: 20070130
  2. LIDODERM [Concomitant]
  3. NEURONTIN [Concomitant]
  4. DARVON [Concomitant]
  5. DARVOCET [Concomitant]

REACTIONS (6)
  - DYSGEUSIA [None]
  - FEELING ABNORMAL [None]
  - FEELING JITTERY [None]
  - IMPULSIVE BEHAVIOUR [None]
  - INITIAL INSOMNIA [None]
  - NAUSEA [None]
